FAERS Safety Report 10019625 (Version 3)
Quarter: 2014Q2

REPORT INFORMATION
  Report Type: Spontaneous
  Country: US (occurrence: US)
  Receive Date: 20140318
  Receipt Date: 20140509
  Transmission Date: 20141212
  Serious: Yes (Other)
  Sender: FDA-Public Use
  Company Number: US-PFIZER INC-2014076727

PATIENT
  Age: 57 Year
  Sex: Female
  Weight: 85.26 kg

DRUGS (12)
  1. LYRICA [Suspect]
     Indication: DIABETIC NEUROPATHY
     Dosage: 200 MG, 3X/DAY
     Route: 048
  2. LYRICA [Suspect]
     Dosage: 400 MG (TWO CAPSULES OF 200MG), 3X/DAY
     Route: 048
  3. ALBUTEROL [Concomitant]
     Dosage: UNK
  4. ALBUTEROL/IPRATROPIUM [Concomitant]
     Dosage: UNK
  5. ASPIRIN [Concomitant]
     Dosage: UNK
  6. ATORVASTATIN [Concomitant]
     Dosage: UNK
  7. BENZONATATE [Concomitant]
     Dosage: UNK
  8. LISINOPRIL [Concomitant]
     Dosage: UNK
  9. SPIRONOLACTONE [Concomitant]
     Dosage: UNK
  10. HYDROCHLOROTHIAZIDE [Concomitant]
     Dosage: UNK
  11. IPRATROPIUM [Concomitant]
     Dosage: UNK
  12. ATENOLOL [Concomitant]
     Dosage: UNK

REACTIONS (10)
  - Coronary artery occlusion [Unknown]
  - Cardiomyopathy [Unknown]
  - Peripheral arterial occlusive disease [Unknown]
  - Cardiac disorder [Unknown]
  - Lung disorder [Unknown]
  - Abasia [Unknown]
  - Diabetic neuropathy [Unknown]
  - Pain in extremity [Unknown]
  - Muscle spasms [Unknown]
  - Peripheral swelling [Unknown]
